FAERS Safety Report 5849218-1 (Version None)
Quarter: 2008Q3

REPORT INFORMATION
  Report Type: 
  Country: None (occurrence: None)
  Receive Date: 20080818
  Receipt Date: 20080818
  Transmission Date: 20090109
  Serious: Yes (Other)
  Sender: FDA-Public Use
  Company Number: None

PATIENT
  Age: 83 Year
  Sex: Male
  Weight: 81.6475 kg

DRUGS (1)
  1. LEVAQUIN [Suspect]
     Indication: EPIDIDYMITIS
     Dosage: 500 MG ONCE PER DAY BUCCAL
     Route: 002
     Dates: start: 20070912, end: 20070915

REACTIONS (3)
  - ARTHRALGIA [None]
  - LOBAR PNEUMONIA [None]
  - TENDERNESS [None]
